FAERS Safety Report 8381351-5 (Version None)
Quarter: 2012Q2

REPORT INFORMATION
  Report Type: 
  Country: None (occurrence: None)
  Receive Date: 20120523
  Receipt Date: 20120519
  Transmission Date: 20120825
  Serious: Yes (Other)
  Sender: FDA-Public Use
  Company Number: US-PFIZER INC-2012121527

PATIENT
  Sex: Female
  Weight: 73 kg

DRUGS (3)
  1. ALPRAZOLAM [Suspect]
     Indication: ANXIETY
     Dosage: 0.5 MG, AS NEEDED
     Route: 048
     Dates: start: 20110101
  2. THYROID TAB [Concomitant]
     Indication: HYPOTHYROIDISM
     Dosage: UNK
  3. ALPRAZOLAM [Suspect]
     Indication: PANIC ATTACK

REACTIONS (7)
  - EYELID PTOSIS [None]
  - ARTHROPATHY [None]
  - GENERAL PHYSICAL HEALTH DETERIORATION [None]
  - DIPLOPIA [None]
  - VISUAL IMPAIRMENT [None]
  - PAIN [None]
  - MALAISE [None]
